FAERS Safety Report 10062038 (Version 1)
Quarter: 2014Q2

REPORT INFORMATION
  Report Type: Spontaneous
  Country: US (occurrence: US)
  Receive Date: 20140407
  Receipt Date: 20140407
  Transmission Date: 20141212
  Serious: Yes (Hospitalization, Other)
  Sender: FDA-Public Use
  Company Number: US-SHIRE-US201400928

PATIENT
  Age: 58 Year
  Sex: Female

DRUGS (1)
  1. FOSRENOL [Suspect]
     Indication: HYPERPHOSPHATAEMIA
     Dosage: UNK, UNKNOWN
     Route: 048

REACTIONS (6)
  - Hypertensive crisis [Unknown]
  - Abdominal tenderness [Unknown]
  - Nausea [Unknown]
  - Vomiting [Unknown]
  - Medication residue present [Unknown]
  - Wrong technique in drug usage process [Unknown]
